FAERS Safety Report 10090938 (Version 2)
Quarter: 2014Q2

REPORT INFORMATION
  Report Type: Spontaneous
  Country: US (occurrence: US)
  Receive Date: 20140421
  Receipt Date: 20140421
  Transmission Date: 20141212
  Serious: Yes (Other)
  Sender: FDA-Public Use
  Company Number: US-GILEAD-2012-0063345

PATIENT
  Sex: Male

DRUGS (1)
  1. LETAIRIS [Suspect]
     Indication: COR PULMONALE CHRONIC
     Dosage: 5 MG, UNK
     Route: 048
     Dates: start: 20120830, end: 2012

REACTIONS (8)
  - No therapeutic response [Unknown]
  - Hyperhidrosis [Unknown]
  - Insomnia [Unknown]
  - Diarrhoea [Unknown]
  - Headache [Unknown]
  - Dyspnoea exertional [Unknown]
  - Swelling [Unknown]
  - Oedema [Unknown]
